FAERS Safety Report 9417391 (Version 1)
Quarter: 2013Q3

REPORT INFORMATION
  Report Type: Spontaneous
  Country: IT (occurrence: IT)
  Receive Date: 20130724
  Receipt Date: 20130724
  Transmission Date: 20140515
  Serious: Yes (Other)
  Sender: FDA-Public Use
  Company Number: IT-ASTRAZENECA-2013SE52998

PATIENT
  Age: 3963 Week
  Sex: Female

DRUGS (4)
  1. FASLODEX [Suspect]
     Route: 030
     Dates: start: 20130510
  2. FASLODEX [Suspect]
     Route: 030
     Dates: start: 20130524
  3. FASLODEX [Suspect]
     Route: 030
     Dates: start: 20130606
  4. FASLODEX [Suspect]
     Route: 030
     Dates: start: 20130704

REACTIONS (1)
  - Thrombocytopenia [Not Recovered/Not Resolved]
